FAERS Safety Report 5683256-7 (Version None)
Quarter: 2008Q1

REPORT INFORMATION
  Report Type: 
  Country: None (occurrence: None)
  Receive Date: 20080327
  Receipt Date: 20080318
  Transmission Date: 20080703
  Serious: Yes (Other)
  Sender: FDA-Public Use
  Company Number: BR-ABBOTT-08P-020-0439740-00

PATIENT
  Sex: Female
  Weight: 70 kg

DRUGS (13)
  1. HUMIRA [Suspect]
     Indication: RHEUMATOID ARTHRITIS
     Route: 058
     Dates: start: 20060401, end: 20080201
  2. PREDNISONE TAB [Concomitant]
     Indication: RHEUMATOID ARTHRITIS
  3. PREDNISONE TAB [Concomitant]
     Route: 048
     Dates: start: 19980101, end: 20071101
  4. PREDNISONE TAB [Concomitant]
     Route: 048
     Dates: start: 20071101, end: 20080101
  5. PREDNISONE TAB [Concomitant]
     Route: 048
     Dates: start: 20080101
  6. METHYLPREDNISOLONE [Concomitant]
     Indication: DRUG USE FOR UNKNOWN INDICATION
  7. DICLOFENAC SODIUM [Concomitant]
     Indication: RHEUMATOID ARTHRITIS
  8. DICLOFENAC SODIUM [Concomitant]
     Route: 048
     Dates: start: 19980101, end: 20071101
  9. DICLOFENAC SODIUM [Concomitant]
     Route: 048
     Dates: start: 20080101
  10. ATENOLOL [Concomitant]
     Indication: MITRAL VALVE INCOMPETENCE
     Route: 048
     Dates: start: 20050101, end: 20071101
  11. ATENOLOL [Concomitant]
     Route: 048
     Dates: start: 20080101
  12. METAMIZOLE SODIUM [Concomitant]
     Indication: ARTHRALGIA
     Dates: start: 20071101, end: 20080101
  13. HYDROXYCHLOROQUINE SULFATE [Concomitant]
     Indication: RHEUMATOID ARTHRITIS
     Route: 048
     Dates: start: 20080101

REACTIONS (2)
  - HEPATITIS [None]
  - JAUNDICE [None]
